FAERS Safety Report 7712876-0 (Version None)
Quarter: 2011Q3

REPORT INFORMATION
  Report Type: 
  Country: None (occurrence: None)
  Receive Date: 20110826
  Receipt Date: 20110817
  Transmission Date: 20111222
  Serious: Yes (Hospitalization)
  Sender: FDA-Public Use
  Company Number: PHEH2011US01768

PATIENT
  Sex: Female

DRUGS (7)
  1. SYNTHROID [Concomitant]
  2. FENTANYL [Concomitant]
  3. ALVESCO [Concomitant]
  4. TOBI [Suspect]
     Dosage: 300 MG, UNK
  5. SPIRIVA [Concomitant]
  6. BROVANA [Concomitant]
     Dosage: UNK
  7. NOXAFIL [Concomitant]

REACTIONS (5)
  - CHEST DISCOMFORT [None]
  - DEVICE MALFUNCTION [None]
  - TOOTH DISORDER [None]
  - PULMONARY CONGESTION [None]
  - OXYGEN SATURATION DECREASED [None]
